FAERS Safety Report 5194103-4 (Version None)
Quarter: 2006Q4

REPORT INFORMATION
  Report Type: 
  Country: None (occurrence: None)
  Receive Date: 20061226
  Receipt Date: 20061214
  Transmission Date: 20070319
  Serious: Yes (Other)
  Sender: FDA-Public Use
  Company Number: S06-USA-05267-01

PATIENT

DRUGS (2)
  1. LEXAPRO [Suspect]
  2. LISINOPRIL [Concomitant]

REACTIONS (3)
  - FULL BLOOD COUNT DECREASED [None]
  - HYPERSENSITIVITY [None]
  - WHEEZING [None]
